FAERS Safety Report 6249110-7 (Version None)
Quarter: 2009Q2

REPORT INFORMATION
  Report Type: 
  Country: None (occurrence: None)
  Receive Date: 20090624
  Receipt Date: 20090615
  Transmission Date: 20091009
  Serious: Yes (Other)
  Sender: FDA-Public Use
  Company Number: TUK2009A00105

PATIENT
  Sex: Male

DRUGS (2)
  1. ACTOS [Suspect]
     Dosage: 15 MG
     Dates: end: 20090401
  2. ACTOS [Suspect]
     Dosage: 15 MG
     Dates: start: 20090401

REACTIONS (1)
  - MACULOPATHY [None]
